FAERS Safety Report 12226590 (Version 1)
Quarter: 2016Q1

REPORT INFORMATION
  Report Type: Spontaneous
  Country: FR (occurrence: FR)
  Receive Date: 20160331
  Receipt Date: 20160331
  Transmission Date: 20160526
  Serious: Yes (Death)
  Sender: FDA-Public Use
  Company Number: PHHY2016FR042323

PATIENT
  Age: 62 Year
  Sex: Female

DRUGS (7)
  1. NEORAL [Suspect]
     Active Substance: CYCLOSPORINE
     Indication: RENAL TRANSPLANT
     Dosage: UNK
     Route: 048
     Dates: start: 20110730, end: 201507
  2. BISOPROLOL HEMIFUMARATE [Concomitant]
     Active Substance: BISOPROLOL FUMARATE
     Indication: PRODUCT USED FOR UNKNOWN INDICATION
     Route: 065
  3. CORTANCYL [Suspect]
     Active Substance: PREDNISONE
     Indication: RENAL TRANSPLANT
     Dosage: 5 MG, QD (1 DF)
     Route: 048
     Dates: start: 20010730
  4. OMEPRAZOLE. [Concomitant]
     Active Substance: OMEPRAZOLE
     Indication: PRODUCT USED FOR UNKNOWN INDICATION
     Route: 065
  5. CERTICAN [Suspect]
     Active Substance: EVEROLIMUS
     Indication: RENAL TRANSPLANT
     Dosage: 0.5 MG, QD (2 DF)
     Route: 065
     Dates: start: 201507
  6. ATORVASTATIN [Concomitant]
     Active Substance: ATORVASTATIN
     Indication: PRODUCT USED FOR UNKNOWN INDICATION
     Route: 065
  7. CELLCEPT [Suspect]
     Active Substance: MYCOPHENOLATE MOFETIL\MYCOPHENOLATE MOFETIL HYDROCHLORIDE
     Indication: RENAL TRANSPLANT
     Dosage: 500 MG, QD (2 DF)
     Route: 048
     Dates: start: 20010730

REACTIONS (1)
  - Diffuse large B-cell lymphoma [Fatal]

NARRATIVE: CASE EVENT DATE: 201507
